FAERS Safety Report 9313385 (Version 1)
Quarter: 2013Q2

REPORT INFORMATION
  Report Type: Spontaneous
  Country: US (occurrence: US)
  Receive Date: 20130528
  Receipt Date: 20130528
  Transmission Date: 20140414
  Serious: No
  Sender: FDA-Public Use
  Company Number: US-ABBOTT-13P-163-1074821-00

PATIENT
  Age: 50 Year
  Sex: Male
  Weight: 66.74 kg

DRUGS (11)
  1. ANDROGEL [Suspect]
     Indication: BLOOD TESTOSTERONE DECREASED
     Dates: start: 2012
  2. NORVIR [Concomitant]
     Indication: HIV INFECTION
  3. TRUVADA [Concomitant]
     Indication: HIV INFECTION
  4. REYATAZ [Concomitant]
     Indication: HIV INFECTION
  5. MORPHINE [Concomitant]
     Indication: PAIN
  6. OXYCODONE [Concomitant]
     Indication: PAIN
  7. XANAX [Concomitant]
     Indication: ANXIETY
  8. SOMA [Concomitant]
     Indication: MUSCLE RELAXANT THERAPY
  9. MOBIC [Concomitant]
     Indication: ANTIINFLAMMATORY THERAPY
  10. DIAZEPAM [Concomitant]
     Indication: MUSCLE RELAXANT THERAPY
  11. AMBIEN [Concomitant]
     Indication: INSOMNIA

REACTIONS (1)
  - Ejaculation disorder [Not Recovered/Not Resolved]
